FAERS Safety Report 5410904-9 (Version None)
Quarter: 2007Q3

REPORT INFORMATION
  Report Type: 
  Country: None (occurrence: None)
  Receive Date: 20070810
  Receipt Date: 20070807
  Transmission Date: 20080115
  Serious: Yes (Death)
  Sender: FDA-Public Use
  Company Number: IL-NOVOPROD-266276

PATIENT
  Age: 32 Year
  Sex: Male

DRUGS (2)
  1. NOVOSEVEN [Suspect]
     Indication: CEREBRAL HAEMORRHAGE
     Dosage: 4.8 MG, UNK
     Dates: start: 20070703
  2. NOVOSEVEN [Suspect]

REACTIONS (1)
  - DEATH [None]
